FAERS Safety Report 7364048-X (Version None)
Quarter: 2011Q1

REPORT INFORMATION
  Report Type: 
  Country: None (occurrence: None)
  Receive Date: 20110321
  Receipt Date: 20110307
  Transmission Date: 20110831
  Serious: Yes (Other)
  Sender: FDA-Public Use
  Company Number: PHEH2006US11216

PATIENT
  Sex: Female

DRUGS (11)
  1. ZOMETA [Suspect]
  2. ALBUTEROL [Concomitant]
  3. AREDIA [Suspect]
  4. HYDROMORPHONE HCL [Concomitant]
  5. PROMETHAZINE [Concomitant]
  6. TAMOXIFEN CITRATE [Concomitant]
  7. QVAR 40 [Concomitant]
  8. ALBUTEROL [Concomitant]
  9. LISINOPRIL [Concomitant]
  10. AFRIN [Concomitant]
  11. FENTANYL [Concomitant]

REACTIONS (34)
  - BONE LESION [None]
  - GINGIVAL INFECTION [None]
  - GENERAL PHYSICAL HEALTH DETERIORATION [None]
  - JOINT SPRAIN [None]
  - SENSITIVITY OF TEETH [None]
  - CONTUSION [None]
  - GINGIVAL ERYTHEMA [None]
  - DECREASED INTEREST [None]
  - RADIUS FRACTURE [None]
  - ARTHRITIS [None]
  - OSTEONECROSIS OF JAW [None]
  - GINGIVAL SWELLING [None]
  - PAIN [None]
  - CHEST PAIN [None]
  - MUSCLE STRAIN [None]
  - URINARY INCONTINENCE [None]
  - HYPERTENSION [None]
  - ALVEOLAR OSTEITIS [None]
  - BRUXISM [None]
  - MUSCULOSKELETAL PAIN [None]
  - RETINOPATHY [None]
  - SKIN ULCER [None]
  - ABSCESS [None]
  - FALL [None]
  - TOOTH INJURY [None]
  - GINGIVAL OEDEMA [None]
  - GINGIVAL PAIN [None]
  - ANXIETY [None]
  - ASTHMA [None]
  - SEASONAL ALLERGY [None]
  - OSTEOMYELITIS [None]
  - HYPERLIPIDAEMIA [None]
  - METASTASES TO BONE [None]
  - OSTEOARTHRITIS [None]
